FAERS Safety Report 4621357-2 (Version None)
Quarter: 2005Q1

REPORT INFORMATION
  Report Type: 
  Country: None (occurrence: None)
  Receive Date: 20050328
  Receipt Date: 20050314
  Transmission Date: 20050727
  Serious: Yes (Death, Hospitalization)
  Sender: FDA-Public Use
  Company Number: 2005044825

PATIENT
  Age: 63 Year
  Sex: Male

DRUGS (5)
  1. DEXTROMETHORPHAN HYDROBROMIDE [Suspect]
     Indication: INTENTIONAL MISUSE
     Dosage: ORAL
     Route: 048
  2. ACETAMINOPHEN [Suspect]
     Indication: INTENTIONAL MISUSE
     Dosage: ORAL
     Route: 048
  3. ETHANOL (ETHANOL) [Suspect]
     Indication: INTENTIONAL MISUSE
     Dosage: ORAL
     Route: 048
  4. ATORVASTATIN CALCIUM [Concomitant]
  5. CARDIOVASCULAR SYSTEM DRUG (CARDIOVASCULAR SYSTEM DRUGS) [Concomitant]

REACTIONS (15)
  - AGGRESSION [None]
  - AMMONIA INCREASED [None]
  - APNOEA [None]
  - BLOOD CREATINE INCREASED [None]
  - BLOOD UREA INCREASED [None]
  - CARDIAC ARREST [None]
  - COMA [None]
  - DRUG SCREEN FALSE POSITIVE [None]
  - HEPATIC FAILURE [None]
  - HYPOTENSION [None]
  - INTERNATIONAL NORMALISED RATIO [None]
  - MENTAL STATUS CHANGES [None]
  - RESPIRATORY ACIDOSIS [None]
  - TROPONIN INCREASED [None]
  - VENTRICULAR TACHYCARDIA [None]
